FAERS Safety Report 13559540 (Version 2)
Quarter: 2017Q2

REPORT INFORMATION
  Report Type: Other
  Country: DK (occurrence: DK)
  Receive Date: 20170518
  Receipt Date: 20170525
  Transmission Date: 20170830
  Serious: Yes (Other)
  Sender: FDA-Public Use
  Company Number: DK-ASTELLAS-2017US018544

PATIENT
  Age: 78 Year
  Sex: Female

DRUGS (16)
  1. ELDEPRYL [Interacting]
     Active Substance: SELEGILINE HYDROCHLORIDE
     Indication: PARKINSON^S DISEASE
     Dosage: 10 MG, ONCE DAILY, STRENGTH: 10 MG
     Route: 048
     Dates: start: 20160607, end: 20170109
  2. METFORMIN [Interacting]
     Active Substance: METFORMIN HYDROCHLORIDE
     Indication: TYPE 2 DIABETES MELLITUS
     Dosage: 1000 MG, TWICE DAILY (2 IN MORNING, 2 IN EVENING)
     Route: 065
  3. METOPROLOL. [Interacting]
     Active Substance: METOPROLOL
     Indication: BLOOD PRESSURE MEASUREMENT
     Dosage: 50 MG, TWICE DAILY (1 IN MORNING AND 1 IN EVENING)
     Route: 065
  4. VESICARE [Suspect]
     Active Substance: SOLIFENACIN SUCCINATE
     Indication: PRODUCT USED FOR UNKNOWN INDICATION
     Dosage: 10 MG, ONCE DAILY (1 AT 20 PM)
     Route: 065
  5. ELDEPRYL [Interacting]
     Active Substance: SELEGILINE HYDROCHLORIDE
     Dosage: 5 MG, ONCE DAILY STRENGTH :5 MG (REDUCED TO 5 MG 5 DAYS AGO)
     Route: 048
  6. VITAMIN D                          /00107901/ [Concomitant]
     Active Substance: ERGOCALCIFEROL
     Indication: PRODUCT USED FOR UNKNOWN INDICATION
     Dosage: 85 ?G, ONCE DAILY (IN MORNING)
     Route: 065
  7. MAGNESIUM [Concomitant]
     Active Substance: MAGNESIUM
     Indication: MUSCLE SPASMS
     Dosage: 150 MG (1 AT 18 PM AND 2 AT 20 PM)
     Route: 065
  8. SPIRIX [Concomitant]
     Active Substance: SPIRONOLACTONE
     Indication: BLOOD PRESSURE MEASUREMENT
     Dosage: 0.5 DF, ONCE DAILY (IN MORNING)
     Route: 065
  9. AMLODIPINE [Concomitant]
     Active Substance: AMLODIPINE BESYLATE
     Indication: BLOOD PRESSURE MEASUREMENT
     Dosage: 5 MG, ONCE DAILY (1 IN MORNING)
     Route: 065
  10. PANODIL [Concomitant]
     Active Substance: ACETAMINOPHEN
     Indication: PRODUCT USED FOR UNKNOWN INDICATION
     Dosage: 2 IN MORNING AND 2 IN EVENING, SOMETIMES MORE
     Route: 065
  11. PANTOPRAZOLE [Concomitant]
     Active Substance: PANTOPRAZOLE
     Indication: PRODUCT USED FOR UNKNOWN INDICATION
     Dosage: 20 MG, ONCE DAILY (1 IN MORNING)
     Route: 065
  12. SINEMET [Concomitant]
     Active Substance: CARBIDOPA\LEVODOPA
     Indication: PRODUCT USED FOR UNKNOWN INDICATION
     Dosage: 2 DF, THRICE DAILY (2 EACH IN MORNING, LUNCH AND EVENING)
     Route: 065
  13. LOSARTAN. [Concomitant]
     Active Substance: LOSARTAN
     Indication: BLOOD PRESSURE MEASUREMENT
     Dosage: 1 DF (100 MG/25 MG), ONCE DAILY IN MORNING
     Route: 065
  14. OMNIMIN [Concomitant]
     Indication: PRODUCT USED FOR UNKNOWN INDICATION
     Dosage: 1 DF, TWICE DAILY (1 IN MORNING AND 1 IN EVENING)
     Route: 065
  15. VESICARE [Interacting]
     Active Substance: SOLIFENACIN SUCCINATE
     Dosage: LAST 5 DAYS, HALF TABLET
     Route: 065
     Dates: end: 20170109
  16. VAGIFEM [Concomitant]
     Active Substance: ESTRADIOL
     Indication: PRODUCT USED FOR UNKNOWN INDICATION
     Dosage: 10 MG, (1 ON WEDNESDAY AND SATURDAY)
     Route: 065

REACTIONS (6)
  - Weight decreased [Unknown]
  - Wrong technique in product usage process [Unknown]
  - Dry mouth [Unknown]
  - Knee operation [Unknown]
  - Drug interaction [Unknown]
  - Decreased appetite [Unknown]

NARRATIVE: CASE EVENT DATE: 20160624
